FAERS Safety Report 19803672 (Version 1)
Quarter: 2021Q3

REPORT INFORMATION
  Report Type: Spontaneous
  Country: US (occurrence: US)
  Receive Date: 20210908
  Receipt Date: 20210908
  Transmission Date: 20211014
  Serious: Yes (Hospitalization)
  Sender: FDA-Public Use
  Company Number: None

PATIENT
  Age: 62 Year
  Sex: Female

DRUGS (13)
  1. COSENTYX [Suspect]
     Active Substance: SECUKINUMAB
     Indication: PSORIASIS
     Dosage: ?          OTHER FREQUENCY:EVERY 4 WEEKS;?
     Route: 058
     Dates: start: 20160429
  2. BENAZEPRIL [Concomitant]
     Active Substance: BENAZEPRIL HYDROCHLORIDE
  3. CYCLOSERINE. [Concomitant]
     Active Substance: CYCLOSERINE
  4. CALCIUM [Concomitant]
     Active Substance: CALCIUM
  5. AZATHIOPRINE. [Concomitant]
     Active Substance: AZATHIOPRINE
  6. SIMPONI [Concomitant]
     Active Substance: GOLIMUMAB
  7. ETODOLAC. [Concomitant]
     Active Substance: ETODOLAC
  8. VIIBRYD [Concomitant]
     Active Substance: VILAZODONE HYDROCHLORIDE
  9. XIGDUO XR [Concomitant]
     Active Substance: DAPAGLIFLOZIN PROPANEDIOL\METFORMIN HYDROCHLORIDE
  10. FAMOTIDINE. [Concomitant]
     Active Substance: FAMOTIDINE
  11. JANUMET [Concomitant]
     Active Substance: METFORMIN HYDROCHLORIDE\SITAGLIPTIN PHOSPHATE
  12. JANUMET XR [Concomitant]
     Active Substance: METFORMIN HYDROCHLORIDE\SITAGLIPTIN PHOSPHATE
  13. MELOXICAM. [Concomitant]
     Active Substance: MELOXICAM

REACTIONS (2)
  - COVID-19 [None]
  - Chills [None]

NARRATIVE: CASE EVENT DATE: 20210907
